FAERS Safety Report 4451102-5 (Version None)
Quarter: 2004Q3

REPORT INFORMATION
  Report Type: 
  Country: None (occurrence: None)
  Receive Date: 20040913
  Receipt Date: 20040616
  Transmission Date: 20050211
  Serious: No
  Sender: FDA-Public Use
  Company Number: 2004-BP-04784BP(0)

PATIENT
  Age: 51 Year
  Sex: Male

DRUGS (4)
  1. SPIRIVA [Suspect]
     Indication: CHRONIC OBSTRUCTIVE AIRWAYS DISEASE
     Dosage: 18 MCG (18 MCG), IH
     Dates: start: 20040614, end: 20040614
  2. KCL (POTASSIUM CHLORIDE) [Suspect]
  3. OXYGEN (OXYGEN) [Concomitant]
  4. DEMADEX [Concomitant]

REACTIONS (4)
  - ABNORMAL SENSATION IN EYE [None]
  - CHEST PAIN [None]
  - HEADACHE [None]
  - NAUSEA [None]
